FAERS Safety Report 6107457-9 (Version None)
Quarter: 2009Q1

REPORT INFORMATION
  Report Type: 
  Country: None (occurrence: None)
  Receive Date: 20090309
  Receipt Date: 20090223
  Transmission Date: 20090719
  Serious: Yes (Hospitalization)
  Sender: FDA-Public Use
  Company Number: FR-PFIZER INC-2009177249

PATIENT

DRUGS (4)
  1. XANAX [Suspect]
     Dosage: 0.25 MG, 4X/DAY
     Route: 048
  2. RISPERIDONE [Suspect]
     Indication: SCHIZOPHRENIA
     Dosage: 4 MG, 2X/DAY
     Route: 048
  3. CYAMEMAZINE [Suspect]
     Indication: SCHIZOPHRENIA
     Dosage: 25 MG, 2X/DAY
     Route: 048
  4. TRIHEXYPHENIDYL [Suspect]
     Dosage: 5 MG, 2X/DAY
     Route: 048

REACTIONS (2)
  - KETOACIDOSIS [None]
  - TYPE 1 DIABETES MELLITUS [None]
